FAERS Safety Report 13362817 (Version 3)
Quarter: 2017Q2

REPORT INFORMATION
  Report Type: Report from Study
  Country: US (occurrence: US)
  Receive Date: 20170323
  Receipt Date: 20170517
  Transmission Date: 20170830
  Serious: Yes (Other)
  Sender: FDA-Public Use
  Company Number: US-PFIZER INC-2016554804

PATIENT
  Age: 55 Year
  Sex: Female

DRUGS (2)
  1. EXEMESTANE. [Concomitant]
     Active Substance: EXEMESTANE
     Indication: HORMONE LEVEL ABNORMAL
     Dosage: UNK
  2. IBRANCE [Suspect]
     Active Substance: PALBOCICLIB
     Indication: BREAST CANCER
     Dosage: 100 MG, CYCLIC (DAILY, 3 WEEKS ON/1 WEEK OFF)
     Route: 048
     Dates: start: 20161120

REACTIONS (13)
  - Bone marrow failure [Not Recovered/Not Resolved]
  - Abdominal pain upper [Recovering/Resolving]
  - Condition aggravated [Unknown]
  - Epistaxis [Unknown]
  - Increased tendency to bruise [Unknown]
  - Product use in unapproved indication [Unknown]
  - Dysgeusia [Unknown]
  - Ear infection [Unknown]
  - Foot fracture [Recovering/Resolving]
  - Blood count abnormal [Not Recovered/Not Resolved]
  - Drug dose omission [Unknown]
  - Fatigue [Not Recovered/Not Resolved]
  - Gingival pain [Unknown]

NARRATIVE: CASE EVENT DATE: 2016
